FAERS Safety Report 6544115-0 (Version None)
Quarter: 2010Q1

REPORT INFORMATION
  Report Type: 
  Country: None (occurrence: None)
  Receive Date: 20100119
  Receipt Date: 20100119
  Transmission Date: 20100710
  Serious: No
  Sender: FDA-Public Use
  Company Number: None

PATIENT
  Age: 36 Year
  Sex: Female
  Weight: 75.2971 kg

DRUGS (1)
  1. ALLI [Suspect]
     Indication: WEIGHT INCREASED
     Dosage: 60MG -ONE CAPSULE- THREE TIMES A DAY PO
     Route: 048

REACTIONS (2)
  - ABDOMINAL PAIN UPPER [None]
  - RECTAL HAEMORRHAGE [None]
